FAERS Safety Report 12857454 (Version 1)
Quarter: 2016Q4

REPORT INFORMATION
  Report Type: Spontaneous
  Country: HU (occurrence: HU)
  Receive Date: 20161018
  Receipt Date: 20161018
  Transmission Date: 20170207
  Serious: Yes (Hospitalization, Other)
  Sender: FDA-Public Use
  Company Number: HU-PFIZER INC-2016054618

PATIENT
  Age: 57 Year
  Sex: Male

DRUGS (11)
  1. SUTENT [Suspect]
     Active Substance: SUNITINIB MALATE
     Indication: CLEAR CELL RENAL CELL CARCINOMA
     Dosage: 1ST CYCLE 50 MG, DAILY (2 WEEKS TAKING, 1 WEEK BREAK)
     Route: 048
     Dates: start: 20130514
  2. SUTENT [Suspect]
     Active Substance: SUNITINIB MALATE
     Dosage: 10TH CYCLE
     Dates: start: 20141110
  3. SUTENT [Suspect]
     Active Substance: SUNITINIB MALATE
     Dosage: 11TH CYCLE 37.5 MG, DAILY, 2 WEEKS TAKING 1 WEEK BREAK SCHEMA
     Route: 048
     Dates: start: 20151211
  4. SUTENT [Suspect]
     Active Substance: SUNITINIB MALATE
     Dosage: 5TH CYCLE
     Dates: start: 20131107
  5. SUTENT [Suspect]
     Active Substance: SUNITINIB MALATE
     Dosage: 8TH CYCLE
     Dates: start: 20140320
  6. SUTENT [Suspect]
     Active Substance: SUNITINIB MALATE
     Dosage: 13TH CYCLE 50 MG, DAILY, ACCORDING TO THE 2 WEEKS TAKING 1 WEEK BREAK SCHEMA
     Route: 048
     Dates: start: 20160318
  7. SUTENT [Suspect]
     Active Substance: SUNITINIB MALATE
     Dosage: 3RD CYCLE
     Dates: start: 20130815
  8. SUTENT [Suspect]
     Active Substance: SUNITINIB MALATE
     Dosage: 9TH CYCLE
     Dates: start: 20141003
  9. SUTENT [Suspect]
     Active Substance: SUNITINIB MALATE
     Dosage: 7TH CYCLE
     Dates: start: 20140206
  10. SUTENT [Suspect]
     Active Substance: SUNITINIB MALATE
     Dosage: 12TH CYCLE
     Dates: start: 20160122
  11. SUTENT [Suspect]
     Active Substance: SUNITINIB MALATE
     Dosage: 2ND CYCLE 50 MG, CYCLIC (28 TABLETS IN 6 WEEKS)
     Route: 048
     Dates: start: 20130624

REACTIONS (24)
  - Asthenia [Recovered/Resolved]
  - Decreased appetite [Recovered/Resolved]
  - Diarrhoea [Not Recovered/Not Resolved]
  - Hypertension [Unknown]
  - Blood pressure systolic increased [Recovered/Resolved]
  - Dyspepsia [Unknown]
  - Gait disturbance [Unknown]
  - Fatigue [Unknown]
  - Ejection fraction abnormal [Unknown]
  - Rash [Unknown]
  - Anaemia [Recovering/Resolving]
  - Helplessness [Unknown]
  - Epistaxis [Unknown]
  - Stomatitis [Recovered/Resolved]
  - Dysuria [Unknown]
  - Yellow skin [Not Recovered/Not Resolved]
  - Blood pressure increased [Recovered/Resolved]
  - Nausea [Recovered/Resolved]
  - Hydrothorax [Unknown]
  - Abdominal distension [Unknown]
  - Renal impairment [Unknown]
  - Micturition disorder [Recovering/Resolving]
  - Vomiting [Not Recovered/Not Resolved]
  - Neoplasm progression [Unknown]

NARRATIVE: CASE EVENT DATE: 20140905
